FAERS Safety Report 8622627-3 (Version None)
Quarter: 2012Q3

REPORT INFORMATION
  Report Type: 
  Country: None (occurrence: None)
  Receive Date: 20120827
  Receipt Date: 20120816
  Transmission Date: 20120928
  Serious: Yes (Hospitalization)
  Sender: FDA-Public Use
  Company Number: CA-JNJFOC-20120707140

PATIENT
  Sex: Male
  Weight: 127 kg

DRUGS (6)
  1. FLAGYL [Concomitant]
     Route: 065
     Dates: start: 20120801
  2. REMICADE [Suspect]
     Indication: CROHN'S DISEASE
     Route: 042
     Dates: start: 20081208
  3. REMICADE [Suspect]
     Route: 042
     Dates: start: 20120712
  4. IMURAN [Concomitant]
     Dosage: 4 TABLETS ONCE A DAY
     Route: 048
  5. CHANTIX [Concomitant]
     Route: 065
  6. CIPROFLOXACIN HCL [Concomitant]
     Route: 065
     Dates: start: 20120801

REACTIONS (1)
  - ANAL ABSCESS [None]
